FAERS Safety Report 16622986 (Version 2)
Quarter: 2019Q3

REPORT INFORMATION
  Report Type: Spontaneous
  Country: US (occurrence: US)
  Receive Date: 20190723
  Receipt Date: 20190918
  Transmission Date: 20191004
  Serious: Yes (Other)
  Sender: FDA-Public Use
  Company Number: US-FRESENIUS KABI-FK201908044

PATIENT
  Sex: Male
  Weight: 105.7 kg

DRUGS (2)
  1. DEFEROXAMINE MESYLATE. [Suspect]
     Active Substance: DEFEROXAMINE MESYLATE
     Indication: IRON OVERLOAD
     Dosage: UNKNOWN
     Dates: start: 20190620
  2. DEFEROXAMINE MESYLATE. [Suspect]
     Active Substance: DEFEROXAMINE MESYLATE
     Dosage: UNKNOWN
     Dates: start: 20190806

REACTIONS (6)
  - Speech disorder [Recovered/Resolved]
  - Miosis [Recovered/Resolved]
  - Oxygen saturation decreased [Recovered/Resolved]
  - Bradycardia [Recovered/Resolved]
  - Somnolence [Recovered/Resolved]
  - Slow response to stimuli [Recovered/Resolved]

NARRATIVE: CASE EVENT DATE: 20190716
